FAERS Safety Report 7044500-7 (Version None)
Quarter: 2010Q4

REPORT INFORMATION
  Report Type: 
  Country: None (occurrence: None)
  Receive Date: 20101013
  Receipt Date: 20101013
  Transmission Date: 20110411
  Serious: Yes (Other)
  Sender: FDA-Public Use
  Company Number: None

PATIENT
  Sex: Female
  Weight: 163.2949 kg

DRUGS (1)
  1. REPLENS DOES NOT APPLY/CONTAINS 14 USES LIL'DRUG STORE PRODUCTS [Suspect]
     Indication: VULVOVAGINAL DRYNESS
     Dosage: 1 APPLICATOR FULL EVER 3 DAYS VAG
     Route: 067
     Dates: start: 20100217, end: 20100927

REACTIONS (2)
  - APPLICATION SITE BLEEDING [None]
  - VAGINAL HAEMORRHAGE [None]
